FAERS Safety Report 10827058 (Version 1)
Quarter: 2015Q1

REPORT INFORMATION
  Report Type: Report from Study
  Country: US (occurrence: US)
  Receive Date: 20150219
  Receipt Date: 20150219
  Transmission Date: 20150721
  Serious: No
  Sender: FDA-Public Use
  Company Number: US-ABBVIE-14K-163-1324202-00

PATIENT
  Age: 42 Year
  Sex: Male

DRUGS (1)
  1. HUMIRA [Suspect]
     Active Substance: ADALIMUMAB
     Indication: RHEUMATOID ARTHRITIS
     Route: 065

REACTIONS (13)
  - Flushing [Unknown]
  - Injection site hypoaesthesia [Unknown]
  - Back pain [Unknown]
  - Hot flush [Unknown]
  - Influenza like illness [Unknown]
  - Thrombosis [Not Recovered/Not Resolved]
  - Nausea [Unknown]
  - Injection site paraesthesia [Unknown]
  - Malaise [Unknown]
  - Pyrexia [Unknown]
  - Feeling abnormal [Not Recovered/Not Resolved]
  - Erythema [Unknown]
  - Injection site pain [Recovered/Resolved]

NARRATIVE: CASE EVENT DATE: 20141202
